FAERS Safety Report 18780311 (Version 1)
Quarter: 2021Q1

REPORT INFORMATION
  Report Type: Spontaneous
  Country: GB (occurrence: GB)
  Receive Date: 20210125
  Receipt Date: 20210125
  Transmission Date: 20210419
  Serious: Yes (Life-Threatening, Hospitalization, Disabling, Other)
  Sender: FDA-Public Use
  Company Number: GB-AUROBINDO-AUR-APL-2011-04925

PATIENT
  Age: 27 Year
  Sex: Female
  Weight: 63.5 kg

DRUGS (22)
  1. TRAMADOL. [Interacting]
     Active Substance: TRAMADOL
     Indication: PRODUCT USED FOR UNKNOWN INDICATION
     Dosage: UNK UNK,FOUR TIMES/DAY,
     Route: 048
     Dates: start: 20080722
  2. AMITRIPTYLINE [Suspect]
     Active Substance: AMITRIPTYLINE
     Indication: MUSCLE SPASMS
     Dosage: 25 MG,ONCE A DAY,
     Route: 065
     Dates: start: 20110810
  3. CLONAZEPAM. [Suspect]
     Active Substance: CLONAZEPAM
     Indication: SEDATION
     Dosage: UNK UNK,UNK,
     Route: 048
     Dates: start: 20110224, end: 20110410
  4. PROCYCLIDINE [Suspect]
     Active Substance: PROCYCLIDINE
     Indication: OCULOGYRIC CRISIS
     Dosage: UNK UNK,UNK,
     Route: 065
     Dates: start: 1995, end: 1996
  5. QUETIAPINE. [Suspect]
     Active Substance: QUETIAPINE
     Indication: PSYCHOTIC DISORDER
     Dosage: 300 MG,UNK,
     Route: 048
     Dates: start: 20110224, end: 20110506
  6. TRAMADOL. [Interacting]
     Active Substance: TRAMADOL
     Dosage: UNK UNK,FOUR TIMES/DAY,
     Route: 048
     Dates: start: 20081201, end: 20101210
  7. DOMPERIDONE TABLETS 10 MG [Suspect]
     Active Substance: DOMPERIDONE
     Indication: PRODUCT USED FOR UNKNOWN INDICATION
     Dosage: UNK UNK,UNK,
     Route: 065
  8. OMEPRAZOLE. [Suspect]
     Active Substance: OMEPRAZOLE
     Indication: DYSPEPSIA
     Dosage: 20 MG,ONCE A DAY,
     Route: 065
     Dates: start: 20110525
  9. SEROXAT [Interacting]
     Active Substance: PAROXETINE HYDROCHLORIDE
     Indication: DEPRESSION
     Dosage: 20 MG,3 TIMES A DAY,
     Route: 048
     Dates: start: 19990801, end: 201105
  10. DIAZEPAM. [Suspect]
     Active Substance: DIAZEPAM
     Indication: MUSCLE SPASMS
     Dosage: 5 MG,FOUR TIMES/DAY,
     Route: 065
     Dates: start: 20110725
  11. CODEINE PHOSPHATE 60 MG TABLETS [Suspect]
     Active Substance: CODEINE PHOSPHATE
     Indication: ANALGESIC THERAPY
     Dosage: UNK UNK,UNK,
     Route: 048
     Dates: start: 2002, end: 2002
  12. CODEINE PHOSPHATE 60 MG  TABLETS [Suspect]
     Active Substance: CODEINE PHOSPHATE
     Indication: SEROTONIN SYNDROME
     Dosage: UNK UNK,UNK,
     Route: 048
     Dates: start: 2008, end: 2008
  13. SEROXAT [Interacting]
     Active Substance: PAROXETINE HYDROCHLORIDE
     Dosage: 20 MG,TWO TIMES A DAY,
     Route: 065
     Dates: start: 201105, end: 20110706
  14. LORAZEPAM. [Suspect]
     Active Substance: LORAZEPAM
     Indication: SEDATION
     Dosage: 1 MG,FOUR TIMES/DAY,
     Route: 048
     Dates: start: 20110523, end: 20110627
  15. PROCYCLIDINE [Suspect]
     Active Substance: PROCYCLIDINE
     Indication: EXTRAPYRAMIDAL DISORDER
     Dosage: 5 MG,3 TIMES A DAY,
     Route: 048
     Dates: start: 20110503, end: 20110510
  16. PAROXETINE 20 MG FILM COATED TABLETS [Interacting]
     Active Substance: PAROXETINE HYDROCHLORIDE
     Indication: POST-TRAUMATIC STRESS DISORDER
     Dosage: 40 MG,ONCE A DAY,
     Route: 048
     Dates: start: 19990801, end: 20110706
  17. PAROXETINE 20 MG FILM COATED TABLETS [Interacting]
     Active Substance: PAROXETINE HYDROCHLORIDE
     Indication: DEPRESSION
     Dosage: UNK UNK,UNK,
     Route: 065
  18. MIRTAZAPINE OD TABLETS 15 MG [Suspect]
     Active Substance: MIRTAZAPINE
     Indication: DEPRESSION
     Dosage: 30 MG,TWO TIMES A DAY,
     Route: 048
     Dates: start: 20100923, end: 20101108
  19. LORAZEPAM. [Suspect]
     Active Substance: LORAZEPAM
     Indication: MUSCLE SPASMS
     Dosage: 1 MG,UNK,
     Route: 065
     Dates: start: 20110224, end: 20110410
  20. CODEINE PHOSPHATE 60 MG  TABLETS [Suspect]
     Active Substance: CODEINE PHOSPHATE
     Dosage: UNK UNK,ONCE A DAY,
     Route: 048
     Dates: start: 20110615, end: 20110723
  21. AMITRIPTYLINE [Suspect]
     Active Substance: AMITRIPTYLINE
     Indication: NEURALGIA
  22. DIAZEPAM. [Suspect]
     Active Substance: DIAZEPAM
     Indication: NEURALGIA
     Dosage: 8 MG,DAILY,
     Route: 065

REACTIONS (84)
  - Suicidal ideation [Not Recovered/Not Resolved]
  - Schizophrenia [Recovering/Resolving]
  - Anxiety [Recovering/Resolving]
  - Tachycardia [Recovering/Resolving]
  - Dissociation [Recovering/Resolving]
  - Derealisation [Recovering/Resolving]
  - Gastric pH decreased [Recovering/Resolving]
  - Headache [Recovering/Resolving]
  - Feeling jittery [Recovering/Resolving]
  - Mood swings [Recovering/Resolving]
  - Musculoskeletal stiffness [Recovering/Resolving]
  - Pallor [Recovering/Resolving]
  - Agitation [Recovering/Resolving]
  - Seizure [Recovering/Resolving]
  - Muscle spasms [Recovering/Resolving]
  - Disorientation [Recovering/Resolving]
  - Paraesthesia [Recovering/Resolving]
  - Asthenia [Recovering/Resolving]
  - Fatigue [Recovering/Resolving]
  - Cogwheel rigidity [Recovering/Resolving]
  - Diarrhoea [Recovering/Resolving]
  - Muscle disorder [Unknown]
  - Eye pain [Recovering/Resolving]
  - Tremor [Recovering/Resolving]
  - Balance disorder [Recovering/Resolving]
  - Speech disorder [Unknown]
  - Muscle rigidity [Recovering/Resolving]
  - Neuroleptic malignant syndrome [Recovering/Resolving]
  - Paralysis [Recovering/Resolving]
  - Dyskinesia [Recovering/Resolving]
  - Dizziness [Recovering/Resolving]
  - Toxicity to various agents [Recovering/Resolving]
  - Heart rate increased [Recovering/Resolving]
  - Limb injury [Recovering/Resolving]
  - Premature labour [Unknown]
  - Drug interaction [Recovering/Resolving]
  - Sleep disorder [Recovering/Resolving]
  - H1N1 influenza [Recovering/Resolving]
  - Drug withdrawal syndrome [Unknown]
  - Serotonin syndrome [Unknown]
  - Hallucinations, mixed [Recovering/Resolving]
  - Dyspnoea [Recovering/Resolving]
  - Drooling [Recovering/Resolving]
  - Tinnitus [Recovering/Resolving]
  - Feeling of despair [Recovering/Resolving]
  - Pyrexia [Recovering/Resolving]
  - Incontinence [Recovering/Resolving]
  - Disturbance in attention [Recovering/Resolving]
  - Hypoaesthesia [Recovering/Resolving]
  - Visual impairment [Recovering/Resolving]
  - Vomiting [Recovering/Resolving]
  - Dystonia [Recovering/Resolving]
  - Confusional state [Not Recovered/Not Resolved]
  - Depersonalisation/derealisation disorder [Not Recovered/Not Resolved]
  - Swollen tongue [Recovering/Resolving]
  - Delirium [Recovering/Resolving]
  - Sensory loss [Recovering/Resolving]
  - Decreased appetite [Recovering/Resolving]
  - Emotional disorder [Recovering/Resolving]
  - Swelling face [Recovering/Resolving]
  - Menstrual disorder [Recovering/Resolving]
  - Restlessness [Recovering/Resolving]
  - Restless legs syndrome [Not Recovered/Not Resolved]
  - Psychotic disorder [Recovered/Resolved]
  - Mania [Recovering/Resolving]
  - Contusion [Recovering/Resolving]
  - Hypoaesthesia oral [Recovering/Resolving]
  - Vision blurred [Recovering/Resolving]
  - Exposure during pregnancy [Unknown]
  - Nightmare [Recovering/Resolving]
  - Skin discolouration [Recovering/Resolving]
  - Cyanosis [Recovering/Resolving]
  - Depression [Recovering/Resolving]
  - Illness [Recovering/Resolving]
  - Blood sodium decreased [Recovering/Resolving]
  - Arthralgia [Recovering/Resolving]
  - Pruritus [Recovering/Resolving]
  - Mydriasis [Recovering/Resolving]
  - Aphasia [Recovered/Resolved]
  - Parosmia [Recovering/Resolving]
  - Hyperhidrosis [Recovering/Resolving]
  - Urinary retention [Recovering/Resolving]
  - Gait disturbance [Recovering/Resolving]
  - Feeling of body temperature change [Recovering/Resolving]

NARRATIVE: CASE EVENT DATE: 2003
